FAERS Safety Report 9259502 (Version 1)
Quarter: 2013Q2

REPORT INFORMATION
  Report Type: Spontaneous
  Country: US (occurrence: US)
  Receive Date: 20130428
  Receipt Date: 20130428
  Transmission Date: 20140414
  Serious: Yes (Hospitalization)
  Sender: FDA-Public Use
  Company Number: US-BRISTOL-MYERS SQUIBB COMPANY-17508086

PATIENT
  Age: 58 Year
  Sex: Male
  Weight: 121.09 kg

DRUGS (17)
  1. BYETTA PEN DISPOSABLE [Suspect]
     Indication: TYPE 2 DIABETES MELLITUS
     Dosage: 10MCG, BID
     Route: 058
     Dates: start: 2006
  2. EXENATIDE 5MCG PEN, DISPOSABLE DEVICE [Concomitant]
  3. ZANTAC [Concomitant]
     Dosage: 300MG
  4. ASPIRIN [Concomitant]
     Dosage: 1DF: 81((UNITS NOS)
  5. ZOCOR [Concomitant]
     Dosage: 1DF:40(UNITS NOS)
  6. STARLIX [Concomitant]
     Dosage: 1DF:120(UNITS NOS)
  7. LANTUS [Concomitant]
     Dosage: 1DF:48(UNITS NOS)
  8. DARVOCET [Concomitant]
     Dosage: 100-650(UNITS NOS)
  9. VICODIN [Concomitant]
  10. NAPROXEN [Concomitant]
     Dosage: 500((UNITS NOS)
  11. FLEXERIL [Concomitant]
     Dosage: 20(UNITS NOS),PRN
  12. HYDROCODONE [Concomitant]
     Dosage: 7.5/150(UNITS NOS).
  13. PREVACID [Concomitant]
     Dosage: 30(UNITS NOS)
  14. AVANDIA [Concomitant]
  15. METFORMIN [Concomitant]
     Dosage: 1DF:500 ((UNITS NOS)
  16. MICARDIS [Concomitant]
  17. NEXIUM [Concomitant]

REACTIONS (2)
  - Renal impairment [Recovered/Resolved]
  - Blood potassium increased [Recovered/Resolved]
